FAERS Safety Report 21768879 (Version 5)
Quarter: 2023Q2

REPORT INFORMATION
  Report Type: Report from Study
  Country: EG (occurrence: EG)
  Receive Date: 20221222
  Receipt Date: 20230623
  Transmission Date: 20230721
  Serious: Yes (Life-Threatening, Hospitalization, Other)
  Sender: FDA-Public Use
  Company Number: EG-002147023-NVSC2022EG295609

PATIENT
  Age: 25 Year
  Sex: Male

DRUGS (10)
  1. TACROLIMUS [Suspect]
     Active Substance: TACROLIMUS
     Indication: Prophylaxis against transplant rejection
     Dosage: UNK, (2 CAPSULES IN THE MORNING AND 2 CAPSULES IN NIGHT)
     Route: 048
     Dates: start: 20220727
  2. TACROLIMUS [Suspect]
     Active Substance: TACROLIMUS
     Dosage: (2 OR 2 AND HALF CAPSULE)
     Route: 065
  3. MYCOPHENOLATE MOFETIL [Suspect]
     Active Substance: MYCOPHENOLATE MOFETIL
     Indication: Prophylaxis against transplant rejection
     Dosage: (END DATE 3 TO 4 DAYS AGO)
     Route: 065
     Dates: start: 20220727
  4. MYCOPHENOLATE MOFETIL [Suspect]
     Active Substance: MYCOPHENOLATE MOFETIL
     Dosage: UNK, (2 CAPSULES IN THE MORNING AND 2 CAPSULES IN NIGHT) (LATE)
     Route: 065
     Dates: start: 202301
  5. MYFORTIC [Suspect]
     Active Substance: MYCOPHENOLATE SODIUM
     Indication: Surgery
     Dosage: (STARTED IT AFTER THE SURGERY AND STOPPED AFTER ONE WEEK FROM THE SURGERY)
     Route: 065
  6. PROGRAF [Concomitant]
     Active Substance: TACROLIMUS
     Indication: Product used for unknown indication
     Dosage: UNK
     Route: 065
  7. CELLCEPT [Concomitant]
     Active Substance: MYCOPHENOLATE MOFETIL
     Indication: Prophylaxis against transplant rejection
     Dosage: (ALTERNATIVELY WITH MYCOPHENALATE MOFETIL, STOPPED IT SINCE 3-4 DAYS)
     Route: 065
  8. CORTISONE [Concomitant]
     Active Substance: CORTISONE
     Indication: Product used for unknown indication
     Dosage: UNK
     Route: 065
  9. SOLUPRED [Concomitant]
     Indication: Prophylaxis against transplant rejection
     Dosage: 1 DOSAGE FORM, EVERY OTHER DAY
     Route: 065
     Dates: start: 20220727
  10. CARDURA [Concomitant]
     Active Substance: DOXAZOSIN MESYLATE
     Indication: Hypertension
     Dosage: 2 DOSAGE FORM, QD
     Route: 065
     Dates: start: 20220321

REACTIONS (23)
  - Immunodeficiency [Not Recovered/Not Resolved]
  - Pyrexia [Not Recovered/Not Resolved]
  - Malaise [Not Recovered/Not Resolved]
  - Tremor [Not Recovered/Not Resolved]
  - Viral test positive [Unknown]
  - Gastric ulcer [Recovered/Resolved]
  - Blood creatinine increased [Recovered/Resolved]
  - Enzyme level increased [Recovering/Resolving]
  - Weight decreased [Recovered/Resolved]
  - Vomiting [Recovered/Resolved]
  - Brucella test positive [Recovering/Resolving]
  - Diarrhoea [Recovered/Resolved]
  - Dehydration [Recovered/Resolved]
  - Food poisoning [Recovered/Resolved]
  - Enteritis [Recovered/Resolved]
  - Alopecia [Recovered/Resolved]
  - Drug level increased [Unknown]
  - Blood urine present [Unknown]
  - Back pain [Unknown]
  - Abdominal pain [Unknown]
  - Urinary tract infection [Unknown]
  - Gait disturbance [Unknown]
  - Musculoskeletal discomfort [Unknown]

NARRATIVE: CASE EVENT DATE: 20220727
